FAERS Safety Report 8255075-9 (Version None)
Quarter: 2012Q2

REPORT INFORMATION
  Report Type: 
  Country: None (occurrence: None)
  Receive Date: 20120403
  Receipt Date: 20120319
  Transmission Date: 20120825
  Serious: Yes (Other)
  Sender: FDA-Public Use
  Company Number: FR-CELGENEUS-056-21880-12010988

PATIENT
  Sex: Male
  Weight: 74 kg

DRUGS (13)
  1. REVLIMID [Suspect]
     Dosage: 25 MILLIGRAM
     Route: 048
     Dates: start: 20111018, end: 20111031
  2. CLAFORAN [Concomitant]
     Route: 065
     Dates: start: 20111030
  3. TRAMADOL HCL [Concomitant]
     Indication: PAIN
     Dosage: 4 TABLET
     Route: 048
     Dates: start: 20111109
  4. BISEPTINE [Concomitant]
     Dosage: 1 DOSAGE FORMS
     Route: 050
     Dates: start: 20111109
  5. NOXAFIL [Concomitant]
     Route: 065
     Dates: start: 20111030
  6. IMIPENEM AND CILASTATIN SODIUM [Suspect]
     Indication: FEBRILE NEUTROPENIA
     Dosage: 3 GRAM
     Route: 041
     Dates: start: 20111022, end: 20111030
  7. CYTARABINE [Concomitant]
     Route: 041
     Dates: start: 20111018, end: 20111025
  8. PRIMPERAN TAB [Concomitant]
     Indication: NAUSEA
     Dosage: 3 TABLET
     Route: 048
     Dates: start: 20111109
  9. DAUNORUBICIN HCL [Concomitant]
     Route: 041
     Dates: start: 20111018, end: 20111025
  10. ACETAMINOPHEN [Concomitant]
     Route: 065
  11. CANCIDAS [Suspect]
     Indication: FEBRILE NEUTROPENIA
     Dosage: 50 MILLIGRAM
     Route: 041
     Dates: start: 20111021, end: 20111030
  12. PIPERACILLIN AND TAZOBACTAM [Concomitant]
     Route: 065
     Dates: start: 20111017, end: 20111022
  13. LEXOMIL [Concomitant]
     Route: 048
     Dates: start: 20111109

REACTIONS (1)
  - NEPHROGENIC DIABETES INSIPIDUS [None]
